FAERS Safety Report 24589881 (Version 1)
Quarter: 2024Q4

REPORT INFORMATION
  Report Type: Spontaneous
  Country: ES (occurrence: ES)
  Receive Date: 20241107
  Receipt Date: 20241107
  Transmission Date: 20250115
  Serious: Yes (Life-Threatening, Hospitalization, Disabling)
  Sender: BOEHRINGER INGELHEIM
  Company Number: ES-BoehringerIngelheim-2024-BI-061497

PATIENT
  Age: 76 Year
  Sex: Male

DRUGS (1)
  1. OFEV [Suspect]
     Active Substance: NINTEDANIB
     Indication: Pulmonary fibrosis
     Route: 048
     Dates: start: 20230106

REACTIONS (3)
  - Ischaemic stroke [Recovered/Resolved with Sequelae]
  - Cardio-respiratory arrest [Not Recovered/Not Resolved]
  - Acute myocardial infarction [Not Recovered/Not Resolved]

NARRATIVE: CASE EVENT DATE: 20240901
